FAERS Safety Report 9961628 (Version 1)
Quarter: 2014Q1

REPORT INFORMATION
  Report Type: Report from Study
  Country: US (occurrence: US)
  Receive Date: 20140305
  Receipt Date: 20140305
  Transmission Date: 20141002
  Serious: No
  Sender: FDA-Public Use
  Company Number: US-ABBVIE-13P-163-1114426-00

PATIENT
  Age: 59 Year
  Sex: Male

DRUGS (7)
  1. HUMIRA [Suspect]
     Indication: CROHN^S DISEASE
     Dates: start: 20130701, end: 20130701
  2. DIOVAN [Concomitant]
     Indication: HYPERTENSION
     Dosage: 160 BY MOUTH DAILY
     Route: 048
  3. MERCAPTOPURINE [Concomitant]
     Indication: CROHN^S DISEASE
     Dosage: 50 MG BY MOUTH DAILY
  4. FLOMAX [Concomitant]
     Indication: PROSTATOMEGALY
     Dosage: 0.4 MG BY MOUTH DAILY
     Route: 048
  5. APRISO [Concomitant]
     Indication: CROHN^S DISEASE
     Dosage: 0.375 MG 4 TABLETS BY MOUTH DAILY
     Route: 048
  6. NOVOLOG [Concomitant]
     Indication: DIABETES MELLITUS
  7. LEVEMIR [Concomitant]
     Indication: DIABETES MELLITUS

REACTIONS (1)
  - Palpitations [Not Recovered/Not Resolved]
